FAERS Safety Report 17493318 (Version 1)
Quarter: 2020Q1

REPORT INFORMATION
  Report Type: Spontaneous
  Country: US (occurrence: US)
  Receive Date: 20200303
  Receipt Date: 20200303
  Transmission Date: 20200409
  Serious: No
  Sender: FDA-Public Use
  Company Number: US-AMNEAL PHARMACEUTICALS-2019-IPXL-00674

PATIENT
  Sex: Male
  Weight: 92 kg

DRUGS (3)
  1. RYTARY [Suspect]
     Active Substance: CARBIDOPA\LEVODOPA
     Indication: PARKINSON^S DISEASE
     Dosage: 2 CAPSULES IN MORNING AND 1 CAPSULE 4 MORE TIMES FOR THE REST OF THE DAY
     Route: 048
     Dates: start: 201503
  2. NUPLAZID [Concomitant]
     Active Substance: PIMAVANSERIN TARTRATE
     Indication: PARKINSON^S DISEASE PSYCHOSIS
     Dosage: 1 DOSAGE FORM, QD
     Route: 048
     Dates: start: 201709
  3. SEROQUEL [Concomitant]
     Active Substance: QUETIAPINE FUMARATE
     Indication: SLEEP DISORDER
     Dosage: 12.5 MILLIGRAM, QD
     Route: 048

REACTIONS (1)
  - Therapeutic product effect decreased [Unknown]
